FAERS Safety Report 7374003-1 (Version None)
Quarter: 2011Q1

REPORT INFORMATION
  Report Type: 
  Country: None (occurrence: None)
  Receive Date: 20110325
  Receipt Date: 20110322
  Transmission Date: 20110831
  Serious: No
  Sender: FDA-Public Use
  Company Number: US-PFIZER INC-2011063635

PATIENT
  Sex: Female
  Weight: 50.3 kg

DRUGS (4)
  1. LORAZEPAM [Concomitant]
     Indication: ANXIETY
     Dosage: 0.5 MG, UNK
  2. EFFEXOR XR [Suspect]
     Indication: ANXIETY
  3. EFFEXOR XR [Suspect]
     Indication: DEPRESSION
     Dosage: 75 MG, 2X/DAY
     Route: 048
     Dates: start: 20040101
  4. EFFEXOR XR [Suspect]
     Indication: SOCIAL PHOBIA

REACTIONS (3)
  - DIZZINESS [None]
  - DRUG EFFECT DECREASED [None]
  - DRY SKIN [None]
